FAERS Safety Report 23753075 (Version 2)
Quarter: 2024Q2

REPORT INFORMATION
  Report Type: Spontaneous
  Country: TW (occurrence: TW)
  Receive Date: 20240417
  Receipt Date: 20240422
  Transmission Date: 20240715
  Serious: Yes (Other)
  Sender: FDA-Public Use
  Company Number: TW-009507513-2404TWN007387

PATIENT
  Age: 56 Year
  Sex: Female

DRUGS (2)
  1. KEYTRUDA [Suspect]
     Active Substance: PEMBROLIZUMAB
     Dosage: 200 MILLIGRAM, Q3W
     Dates: start: 20231005
  2. LENVATINIB MESYLATE [Suspect]
     Active Substance: LENVATINIB MESYLATE
     Dosage: 10 MILLIGRAM, QD (STABLE DOSE)
     Route: 048
     Dates: start: 20231005

REACTIONS (4)
  - Malignant neoplasm progression [Unknown]
  - Ascites [Recovering/Resolving]
  - Cholelithiasis [Unknown]
  - Product use issue [Unknown]

NARRATIVE: CASE EVENT DATE: 20231005
